FAERS Safety Report 6027473-5 (Version None)
Quarter: 2009Q1

REPORT INFORMATION
  Report Type: 
  Country: None (occurrence: None)
  Receive Date: 20090105
  Receipt Date: 20081215
  Transmission Date: 20090719
  Serious: Yes (Other)
  Sender: FDA-Public Use
  Company Number: US-PFIZER INC-2008098509

PATIENT
  Sex: Female
  Weight: 78.458 kg

DRUGS (2)
  1. CADUET [Suspect]
     Indication: BLOOD CHOLESTEROL INCREASED
     Dosage: 5/80 MG, 1X/DAY
     Route: 048
     Dates: start: 20050101, end: 20081101
  2. CADUET [Suspect]
     Indication: HYPERTENSION

REACTIONS (10)
  - C-REACTIVE PROTEIN INCREASED [None]
  - FLUID RETENTION [None]
  - HEPATIC NEOPLASM [None]
  - HIATUS HERNIA [None]
  - INFLAMMATION [None]
  - LUNG NEOPLASM [None]
  - MUSCLE DISORDER [None]
  - NEURALGIA [None]
  - PAIN [None]
  - THYROID NEOPLASM [None]
